FAERS Safety Report 12693442 (Version 1)
Quarter: 2016Q3

REPORT INFORMATION
  Report Type: Spontaneous
  Country: US (occurrence: US)
  Receive Date: 20160829
  Receipt Date: 20160829
  Transmission Date: 20161109
  Serious: Yes (Other)
  Sender: FDA-Public Use
  Company Number: US-GLAXOSMITHKLINE-US2016124781

PATIENT
  Age: 89 Year
  Sex: Female

DRUGS (1)
  1. TRANSDERM SCOP [Suspect]
     Active Substance: SCOPOLAMINE
     Indication: MOTION SICKNESS
     Dosage: UNK
     Dates: start: 2002, end: 2004

REACTIONS (3)
  - Cataract [Recovering/Resolving]
  - Diplopia [Not Recovered/Not Resolved]
  - Glaucoma [Recovering/Resolving]
